FAERS Safety Report 5457832-0 (Version None)
Quarter: 2007Q3

REPORT INFORMATION
  Report Type: 
  Country: None (occurrence: None)
  Receive Date: 20070917
  Receipt Date: 20070905
  Transmission Date: 20080115
  Serious: Yes (Hospitalization)
  Sender: FDA-Public Use
  Company Number: 161223USA

PATIENT
  Age: 39 Year
  Sex: Female
  Weight: 204.1187 kg

DRUGS (16)
  1. PROPOFOL [Suspect]
     Indication: GENERAL ANAESTHESIA
     Dosage: INTRAVENOUS (NOT OTHERWISE SPECIFIED)
     Route: 042
     Dates: start: 20070419, end: 20070419
  2. CITALOPRAM HYDROBROMIDE [Suspect]
     Indication: DEPRESSION
     Dosage: 40 MG (40 MG, 1 IN 1 D)
     Dates: end: 20070401
  3. FENTANYL [Suspect]
     Dates: start: 20070419, end: 20070419
  4. FUROSEMIDE [Concomitant]
  5. LISINOPRIL [Concomitant]
  6. CLONIDINE [Concomitant]
  7. DOCUSATE SODIUM [Concomitant]
  8. FAMOTIDINE [Concomitant]
  9. TYLOX [Concomitant]
  10. PROMETHAZINE [Concomitant]
  11. PARACETAMOL [Concomitant]
  12. MIDAZOLAM HYDROCHLORIDE [Concomitant]
  13. METOCLOPRAMIDE [Concomitant]
  14. ONDANSETRON [Concomitant]
  15. DEXAMETHASONE 0.5MG TAB [Concomitant]
  16. GLYCOPYRRONIUM BROMIDE [Concomitant]

REACTIONS (3)
  - ABSCESS LIMB [None]
  - CELLULITIS [None]
  - RENAL FAILURE [None]
